FAERS Safety Report 8271815-7 (Version None)
Quarter: 2012Q2

REPORT INFORMATION
  Report Type: 
  Country: None (occurrence: None)
  Receive Date: 20120410
  Receipt Date: 20110921
  Transmission Date: 20120825
  Serious: No
  Sender: FDA-Public Use
  Company Number: US-BAUSCH-2011BL006344

PATIENT
  Age: 74 Year
  Sex: Male

DRUGS (2)
  1. POLYMYXIN B SULFATES AND TRIMETHOPRIM SULFATE [Suspect]
     Indication: EYE INFLAMMATION
     Route: 047
     Dates: start: 20110917, end: 20110920
  2. POLYMYXIN B SULFATES AND TRIMETHOPRIM SULFATE [Suspect]
     Indication: BACTERIAL INFECTION
     Route: 047
     Dates: start: 20110917, end: 20110920

REACTIONS (5)
  - EYE SWELLING [None]
  - CONDITION AGGRAVATED [None]
  - OCULAR HYPERAEMIA [None]
  - INSTILLATION SITE PAIN [None]
  - EYELID PTOSIS [None]
